FAERS Safety Report 23543882 (Version 2)
Quarter: 2024Q1

REPORT INFORMATION
  Report Type: Spontaneous
  Country: JP (occurrence: JP)
  Receive Date: 20240220
  Receipt Date: 20240311
  Transmission Date: 20240409
  Serious: Yes (Life-Threatening, Other)
  Sender: FDA-Public Use
  Company Number: JP-SANDOZ-SDZ2024JP014632

PATIENT
  Age: 82 Year
  Sex: Male

DRUGS (1)
  1. DEFERASIROX [Suspect]
     Active Substance: DEFERASIROX
     Indication: Iron overload
     Dosage: 360 MG, QD
     Route: 048

REACTIONS (1)
  - Gastrointestinal haemorrhage [Recovered/Resolved]

NARRATIVE: CASE EVENT DATE: 20231218
